FAERS Safety Report 6779965-9 (Version None)
Quarter: 2010Q2

REPORT INFORMATION
  Report Type: 
  Country: None (occurrence: None)
  Receive Date: 20100618
  Receipt Date: 20100608
  Transmission Date: 20101027
  Serious: Yes (Hospitalization, Other)
  Sender: FDA-Public Use
  Company Number: DE-MEDIMMUNE-MEDI-0010655

PATIENT
  Age: 10 Month
  Sex: Female

DRUGS (5)
  1. SYNAGIS [Suspect]
     Indication: RESPIRATORY SYNCYTIAL VIRUS INFECTION
     Route: 030
     Dates: start: 20100201, end: 20100201
  2. SYNAGIS [Suspect]
     Route: 030
     Dates: start: 20100311, end: 20100311
  3. SPIRONOLACTONE [Concomitant]
     Route: 048
  4. BISOPROLOL [Concomitant]
     Route: 048
  5. D-FLUORETTEN [Concomitant]
     Route: 048

REACTIONS (12)
  - BODY TEMPERATURE INCREASED [None]
  - BRONCHITIS [None]
  - C-REACTIVE PROTEIN INCREASED [None]
  - CONVULSION [None]
  - COUGH [None]
  - CYANOSIS [None]
  - ERYTHEMA [None]
  - HYPOTONIA [None]
  - RESPIRATORY SYNCYTIAL VIRUS INFECTION [None]
  - RHINITIS [None]
  - TREMOR [None]
  - WHEEZING [None]
